FAERS Safety Report 6875227-X (Version None)
Quarter: 2010Q3

REPORT INFORMATION
  Report Type: 
  Country: None (occurrence: None)
  Receive Date: 20100727
  Receipt Date: 20100714
  Transmission Date: 20110219
  Serious: Yes (Hospitalization)
  Sender: FDA-Public Use
  Company Number: US-JNJFOC-20100704596

PATIENT
  Sex: Female

DRUGS (7)
  1. REMICADE [Suspect]
     Indication: PSORIATIC ARTHROPATHY
     Route: 042
  2. REMICADE [Suspect]
     Route: 042
  3. REMICADE [Suspect]
     Route: 042
  4. ACETAMINOPHEN [Concomitant]
     Indication: HEADACHE
     Dosage: AS NEEDED
  5. ACIDOPHILUS [Concomitant]
     Indication: GASTRIC DISORDER
  6. ADVIL LIQUI-GELS [Concomitant]
     Indication: ARTHRITIS
  7. LORATADINE [Concomitant]
     Indication: MULTIPLE ALLERGIES
     Dosage: AS NEEDED

REACTIONS (5)
  - CULTURE URINE POSITIVE [None]
  - MIGRAINE [None]
  - NEPHROLITHIASIS [None]
  - PYREXIA [None]
  - SINUS HEADACHE [None]
